FAERS Safety Report 5122026-5 (Version None)
Quarter: 2006Q4

REPORT INFORMATION
  Report Type: 
  Country: None (occurrence: None)
  Receive Date: 20061006
  Receipt Date: 20060928
  Transmission Date: 20070319
  Serious: Yes (Life-Threatening, Hospitalization)
  Sender: FDA-Public Use
  Company Number: TR-JNJFOC-20060906460

PATIENT
  Age: 45 Year
  Sex: Male

DRUGS (1)
  1. LEVOFLOXACIN [Suspect]
     Indication: PNEUMONIA PRIMARY ATYPICAL
     Route: 065

REACTIONS (4)
  - MUSCULAR WEAKNESS [None]
  - MYASTHENIA GRAVIS [None]
  - RESPIRATORY FAILURE [None]
  - THYMOMA [None]
